FAERS Safety Report 12892217 (Version 1)
Quarter: 2016Q4

REPORT INFORMATION
  Report Type: Spontaneous
  Country: US (occurrence: US)
  Receive Date: 20161026
  Receipt Date: 20161026
  Transmission Date: 20170207
  Serious: No
  Sender: FDA-Public Use
  Company Number: None

PATIENT
  Age: 49 Year
  Sex: Male
  Weight: 65 kg

DRUGS (1)
  1. SULFAMETHOXAZOLE/TRIMETHOPRIM [Suspect]
     Active Substance: SULFAMETHOXAZOLE\TRIMETHOPRIM
     Indication: SURGERY
     Route: 048
     Dates: start: 20161019, end: 20161019

REACTIONS (3)
  - Nausea [None]
  - Trismus [None]
  - Hypertension [None]

NARRATIVE: CASE EVENT DATE: 20161019
